FAERS Safety Report 10086726 (Version 1)
Quarter: 2014Q2

REPORT INFORMATION
  Report Type: Report from Study
  Country: UG (occurrence: UG)
  Receive Date: 20140418
  Receipt Date: 20140418
  Transmission Date: 20141212
  Serious: Yes (Death)
  Sender: FDA-Public Use
  Company Number: UG-BRISTOL-MYERS SQUIBB COMPANY-20613220

PATIENT
  Sex: Female

DRUGS (10)
  1. EFAVIRENZ TABS [Suspect]
     Indication: HIV INFECTION
     Dates: start: 20140313, end: 20140322
  2. ACETAMINOPHEN [Suspect]
     Dates: start: 20140313, end: 20140315
  3. RALTEGRAVIR [Suspect]
     Indication: HIV INFECTION
     Dosage: TABS
     Dates: start: 20140313, end: 20140322
  4. FLUCONAZOLE [Suspect]
     Dates: start: 20140312, end: 20140322
  5. AZITHROMYCIN [Suspect]
     Dates: start: 20140313, end: 20140315
  6. NUTRITIONAL SUPPLEMENT [Suspect]
     Dates: start: 20140313, end: 20140322
  7. EMTRICITABINE [Suspect]
     Dosage: TABS
     Dates: start: 20140313, end: 20140322
  8. TENOFOVIR [Suspect]
     Dosage: TABS
     Dates: start: 20140313, end: 20140322
  9. SEPTRIN [Suspect]
     Dates: start: 20140306, end: 20140322
  10. AUGMENTIN [Suspect]
     Dates: start: 20140306, end: 20140311

REACTIONS (2)
  - Death [Fatal]
  - Malnutrition [Fatal]
